FAERS Safety Report 24029494 (Version 1)
Quarter: 2024Q2

REPORT INFORMATION
  Report Type: Report from Study
  Country: US (occurrence: US)
  Receive Date: 20240628
  Receipt Date: 20240628
  Transmission Date: 20240716
  Serious: Yes (Hospitalization)
  Sender: FDA-Public Use
  Company Number: US-GILEAD-2024-0676865

PATIENT
  Age: 73 Year
  Sex: Male

DRUGS (1)
  1. AZTREONAM LYSINE [Suspect]
     Active Substance: AZTREONAM LYSINE
     Indication: Pseudomonas infection
     Dosage: 1 DOSAGE FORM, TID VIA NEBULIZER FOR 28 DAYS ON, 28 DAYS OFF
     Route: 055
     Dates: start: 20240328

REACTIONS (5)
  - Chest pain [Unknown]
  - Illness [Unknown]
  - Off label use [Not Recovered/Not Resolved]
  - Product dose omission issue [Unknown]
  - Intentional dose omission [Unknown]

NARRATIVE: CASE EVENT DATE: 20240526
